FAERS Safety Report 14270373 (Version 1)
Quarter: 2017Q4

REPORT INFORMATION
  Report Type: Spontaneous
  Country: JP (occurrence: JP)
  Receive Date: 20171211
  Receipt Date: 20171211
  Transmission Date: 20180321
  Serious: Yes (Hospitalization, Other)
  Sender: FDA-Public Use
  Company Number: JP-OTSUKA-2016_007161

PATIENT
  Age: 1 Day
  Sex: Male

DRUGS (4)
  1. QUETIAPINE. [Suspect]
     Active Substance: QUETIAPINE
     Indication: PRODUCT USED FOR UNKNOWN INDICATION
     Dosage: 12.5 MG, QD
     Route: 064
     Dates: start: 20160129
  2. ABILIFY [Suspect]
     Active Substance: ARIPIPRAZOLE
     Indication: DEPRESSION
     Dosage: 1.5 MG, QD
     Route: 064
     Dates: start: 20160212, end: 20160321
  3. SEROQUEL [Suspect]
     Active Substance: QUETIAPINE FUMARATE
     Indication: PRODUCT USED FOR UNKNOWN INDICATION
     Dosage: 12.5 MG, QD
     Route: 064
     Dates: start: 20160129, end: 20160211
  4. ABILIFY [Suspect]
     Active Substance: ARIPIPRAZOLE
     Indication: PREMENSTRUAL DYSPHORIC DISORDER

REACTIONS (3)
  - Blood creatine phosphokinase increased [Recovered/Resolved]
  - Foetal exposure during pregnancy [Unknown]
  - Fever neonatal [Recovering/Resolving]

NARRATIVE: CASE EVENT DATE: 20160325
